FAERS Safety Report 5334668-2 (Version None)
Quarter: 2007Q2

REPORT INFORMATION
  Report Type: 
  Country: None (occurrence: None)
  Receive Date: 20070525
  Receipt Date: 20070523
  Transmission Date: 20071010
  Serious: Yes (Other)
  Sender: FDA-Public Use
  Company Number: B0472291A

PATIENT
  Age: 70 Year
  Sex: Male

DRUGS (3)
  1. AVANDIA [Suspect]
     Indication: DRUG USE FOR UNKNOWN INDICATION
     Dosage: 4MG PER DAY
     Route: 065
  2. METFORMIN HCL [Concomitant]
     Route: 065
  3. DIAMICRON [Concomitant]
     Route: 065

REACTIONS (2)
  - DYSPNOEA [None]
  - PULMONARY CONGESTION [None]
